FAERS Safety Report 9206133 (Version 2)
Quarter: 2013Q2

REPORT INFORMATION
  Report Type: Spontaneous
  Country: US (occurrence: None)
  Receive Date: 20130401
  Receipt Date: 20130425
  Transmission Date: 20140414
  Serious: Yes (Other)
  Sender: FDA-Public Use
  Company Number: 1303-397

PATIENT
  Age: 71 Year
  Sex: Female

DRUGS (1)
  1. EYLEA [Suspect]
     Indication: CHOROIDAL NEOVASCULARISATION
     Dosage: 2MG INTRAVITREAL
     Dates: start: 20120718

REACTIONS (3)
  - Vitritis [None]
  - Eye pain [None]
  - Blindness transient [None]
